FAERS Safety Report 25718686 (Version 1)
Quarter: 2025Q3

REPORT INFORMATION
  Report Type: Spontaneous
  Country: US (occurrence: US)
  Receive Date: 20250823
  Receipt Date: 20250823
  Transmission Date: 20251020
  Serious: Yes (Other)
  Sender: MSN LABORATORIES PRIVATE LIMITED
  Company Number: US-MSNLABS-2025MSNLIT02249

PATIENT

DRUGS (5)
  1. LOSARTAN [Suspect]
     Active Substance: LOSARTAN
     Indication: Hypertension
     Route: 065
  2. AMLODIPINE [Suspect]
     Active Substance: AMLODIPINE BESYLATE
     Indication: Hypertension
     Route: 065
  3. HYDRALAZINE [Suspect]
     Active Substance: HYDRALAZINE HYDROCHLORIDE
     Indication: Hypertension
     Route: 065
  4. METOPROLOL [Suspect]
     Active Substance: METOPROLOL
     Indication: Hypertension
     Route: 065
  5. TERAZOSIN [Suspect]
     Active Substance: TERAZOSIN HYDROCHLORIDE
     Indication: Hypertension
     Route: 065

REACTIONS (2)
  - Hypertensive crisis [Unknown]
  - Rebound effect [Unknown]
